FAERS Safety Report 8558257-1 (Version None)
Quarter: 2012Q3

REPORT INFORMATION
  Report Type: 
  Country: None (occurrence: None)
  Receive Date: 20120801
  Receipt Date: 20120726
  Transmission Date: 20120928
  Serious: Yes (Hospitalization, Disabling, Other)
  Sender: FDA-Public Use
  Company Number: US-009507513-1108USA01227

PATIENT

DRUGS (5)
  1. FOSAMAX [Suspect]
     Indication: OSTEOPOROSIS
     Dosage: 10 MG, QD
     Route: 048
     Dates: start: 19980518
  2. FOSAMAX [Suspect]
     Dosage: 70  MG, QD
     Route: 048
     Dates: start: 20060118
  3. HORMONES (UNSPECIFIED) [Concomitant]
     Dates: start: 19970101
  4. FOSAMAX [Suspect]
     Dosage: 70 MG, QW
     Route: 048
     Dates: start: 20080101, end: 20090601
  5. FOSAMAX [Suspect]
     Dosage: 70 MG, QW
     Route: 048
     Dates: start: 20081229, end: 20090801

REACTIONS (47)
  - OESOPHAGEAL STENOSIS [None]
  - FIBROCYSTIC BREAST DISEASE [None]
  - ADVERSE DRUG REACTION [None]
  - TEMPOROMANDIBULAR JOINT SYNDROME [None]
  - CHEST X-RAY ABNORMAL [None]
  - PNEUMONIA [None]
  - HYPERCHOLESTEROLAEMIA [None]
  - ANAEMIA [None]
  - ADENOIDAL DISORDER [None]
  - FRACTURE DELAYED UNION [None]
  - BONE LOSS [None]
  - INTERVERTEBRAL DISC PROTRUSION [None]
  - MUSCLE RUPTURE [None]
  - DEVICE MALFUNCTION [None]
  - VENOUS INSUFFICIENCY [None]
  - IRRITABLE BOWEL SYNDROME [None]
  - HYPERTENSION [None]
  - PAIN [None]
  - ARTHRITIS [None]
  - HAEMATURIA [None]
  - ARTHROPATHY [None]
  - TOOTH DEPOSIT [None]
  - SINUS DISORDER [None]
  - CONTUSION [None]
  - ARTHRALGIA [None]
  - FRACTURE NONUNION [None]
  - SPINAL DISORDER [None]
  - LUMBAR RADICULOPATHY [None]
  - HYPERLIPIDAEMIA [None]
  - GASTROINTESTINAL DISORDER [None]
  - FALL [None]
  - SPONDYLOLISTHESIS [None]
  - OEDEMA PERIPHERAL [None]
  - INTERVERTEBRAL DISC DEGENERATION [None]
  - PAIN IN EXTREMITY [None]
  - GASTROOESOPHAGEAL REFLUX DISEASE [None]
  - DENTAL CARIES [None]
  - FEMUR FRACTURE [None]
  - PUBIS FRACTURE [None]
  - HYPERSENSITIVITY [None]
  - RHINITIS SEASONAL [None]
  - HYPONATRAEMIA [None]
  - NECK MASS [None]
  - DIZZINESS [None]
  - TOOTH FRACTURE [None]
  - TONGUE DISORDER [None]
  - POST LAMINECTOMY SYNDROME [None]
